FAERS Safety Report 5185364-6 (Version None)
Quarter: 2006Q4

REPORT INFORMATION
  Report Type: 
  Country: None (occurrence: None)
  Receive Date: 20061220
  Receipt Date: 20060710
  Transmission Date: 20070319
  Serious: No
  Sender: FDA-Public Use
  Company Number: US-GLAXOSMITHKLINE-A0611608A

PATIENT
  Age: 59 Year
  Sex: Female

DRUGS (3)
  1. NICODERM CQ [Suspect]
     Dates: start: 20060706, end: 20060707
  2. COMMIT [Suspect]
  3. NICORETTE [Suspect]

REACTIONS (6)
  - ANXIETY [None]
  - CRYING [None]
  - DEPRESSED MOOD [None]
  - HICCUPS [None]
  - INSOMNIA [None]
  - NAUSEA [None]
